FAERS Safety Report 7632590-X (Version None)
Quarter: 2011Q3

REPORT INFORMATION
  Report Type: 
  Country: None (occurrence: None)
  Receive Date: 20110725
  Receipt Date: 20101025
  Transmission Date: 20111222
  Serious: No
  Sender: FDA-Public Use
  Company Number: US-BRISTOL-MYERS SQUIBB COMPANY-15349681

PATIENT
  Age: 78 Year
  Sex: Female
  Weight: 54 kg

DRUGS (4)
  1. LEVOTHROID [Concomitant]
  2. TEGRETOL [Concomitant]
  3. AROMASIN [Concomitant]
  4. COUMADIN [Suspect]
     Indication: THROMBOSIS

REACTIONS (2)
  - HYPOAESTHESIA [None]
  - MALAISE [None]
